FAERS Safety Report 8457427-0 (Version None)
Quarter: 2012Q2

REPORT INFORMATION
  Report Type: 
  Country: None (occurrence: None)
  Receive Date: 20120621
  Receipt Date: 20120613
  Transmission Date: 20120825
  Serious: Yes (Hospitalization)
  Sender: FDA-Public Use
  Company Number: US-MERCK-1201USA03739

PATIENT
  Age: 73 Year
  Sex: Female
  Weight: 61 kg

DRUGS (2)
  1. FOSAMAX [Suspect]
     Indication: OSTEOPOROSIS
     Route: 048
     Dates: start: 20020701, end: 20080101
  2. ALENDRONATE SODIUM [Suspect]
     Route: 048
     Dates: start: 20080701

REACTIONS (35)
  - GINGIVAL BLEEDING [None]
  - VITAMIN D DEFICIENCY [None]
  - DEVICE FAILURE [None]
  - HYPERLIPIDAEMIA [None]
  - HYPERCHOLESTEROLAEMIA [None]
  - ANAEMIA [None]
  - URINARY TRACT INFECTION [None]
  - ABNORMAL WEIGHT GAIN [None]
  - LUNG DISORDER [None]
  - TEMPOROMANDIBULAR JOINT SYNDROME [None]
  - ABSCESS [None]
  - DIVERTICULITIS [None]
  - SEASONAL ALLERGY [None]
  - RENAL CYST [None]
  - FEMUR FRACTURE [None]
  - FALL [None]
  - ASTHMA [None]
  - GINGIVAL DISORDER [None]
  - GASTROOESOPHAGEAL REFLUX DISEASE [None]
  - ABDOMINAL HERNIA [None]
  - THROMBOPHLEBITIS SUPERFICIAL [None]
  - CANDIDIASIS [None]
  - BUNDLE BRANCH BLOCK LEFT [None]
  - VITILIGO [None]
  - ATROPHIC VULVOVAGINITIS [None]
  - MIGRAINE [None]
  - MACULAR DEGENERATION [None]
  - IMPAIRED HEALING [None]
  - PNEUMONIA [None]
  - OSTEOARTHRITIS [None]
  - FOOT FRACTURE [None]
  - ANGIOPATHY [None]
  - INGROWING NAIL [None]
  - BRONCHITIS [None]
  - ANXIETY [None]
